FAERS Safety Report 24359611 (Version 1)
Quarter: 2024Q3

REPORT INFORMATION
  Report Type: Spontaneous
  Country: US (occurrence: US)
  Receive Date: 20240924
  Receipt Date: 20240924
  Transmission Date: 20241017
  Serious: No
  Sender: BAUSCH AND LOMB
  Company Number: US-BAUSCHBL-2024BNL033489

PATIENT
  Age: 49 Year
  Sex: Male

DRUGS (2)
  1. VYZULTA [Suspect]
     Active Substance: LATANOPROSTENE BUNOD
     Indication: Glaucoma
     Dosage: 5 ML
     Route: 047
     Dates: start: 20240909, end: 20240910
  2. VYZULTA [Suspect]
     Active Substance: LATANOPROSTENE BUNOD
     Dosage: 2.5 ML
     Route: 065
     Dates: start: 20240911, end: 20240913

REACTIONS (4)
  - Vision blurred [Unknown]
  - Ill-defined disorder [Unknown]
  - Product complaint [Unknown]
  - Product expiration date issue [Unknown]

NARRATIVE: CASE EVENT DATE: 20240909
